FAERS Safety Report 10113461 (Version 1)
Quarter: 2014Q2

REPORT INFORMATION
  Report Type: Spontaneous
  Country: US (occurrence: US)
  Receive Date: 20140425
  Receipt Date: 20140425
  Transmission Date: 20141212
  Serious: Yes (Hospitalization)
  Sender: FDA-Public Use
  Company Number: US-BAYER-2014-059699

PATIENT
  Age: 40 Year
  Sex: Female
  Weight: 63.95 kg

DRUGS (3)
  1. YAZ [Suspect]
  2. YASMIN [Suspect]
  3. HYDROCORTISONE [Concomitant]
     Dosage: 25 MG, UNK
     Route: 048
     Dates: start: 20070907

REACTIONS (1)
  - Pulmonary embolism [None]
